FAERS Safety Report 20204257 (Version 1)
Quarter: 2021Q4

REPORT INFORMATION
  Report Type: Report from Study
  Country: ES (occurrence: ES)
  Receive Date: 20211220
  Receipt Date: 20211220
  Transmission Date: 20220303
  Serious: Yes (Life-Threatening)
  Sender: FDA-Public Use
  Company Number: None

PATIENT
  Age: 32 Year
  Sex: Female

DRUGS (5)
  1. FENTANYL [Suspect]
     Active Substance: FENTANYL
     Indication: Suicide attempt
     Dosage: 2 PATCHES OF FENTANYL; IN TOTAL
     Route: 062
     Dates: start: 20200929, end: 20200929
  2. TRAZODONE [Suspect]
     Active Substance: TRAZODONE HYDROCHLORIDE
     Indication: Suicide attempt
     Dosage: 30 TABLETS OF 100 MG; IN TOTAL
     Route: 048
     Dates: start: 20200929, end: 20200929
  3. LORAZEPAM [Suspect]
     Active Substance: LORAZEPAM
     Indication: Suicide attempt
     Route: 048
     Dates: start: 20200929, end: 20200929
  4. AMITRIPTYLINE HYDROCHLORIDE [Suspect]
     Active Substance: AMITRIPTYLINE HYDROCHLORIDE
     Indication: Suicide attempt
     Dosage: 25 TABLETS OF 25 MG; IN TOTAL
     Route: 048
     Dates: start: 20200929, end: 20200929
  5. PREGABALIN [Suspect]
     Active Substance: PREGABALIN
     Indication: Suicide attempt
     Dosage: ; IN TOTAL
     Route: 048
     Dates: start: 20200929, end: 20200929

REACTIONS (2)
  - Acute respiratory failure [Recovered/Resolved]
  - Depressed level of consciousness [Recovered/Resolved]

NARRATIVE: CASE EVENT DATE: 20200929
